FAERS Safety Report 20194090 (Version 1)
Quarter: 2021Q4

REPORT INFORMATION
  Report Type: Spontaneous
  Country: RO (occurrence: None)
  Receive Date: 20211216
  Receipt Date: 20211216
  Transmission Date: 20220303
  Serious: Yes (Other)
  Sender: FDA-Public Use
  Company Number: 2021A868039

PATIENT
  Age: 63 Year
  Sex: Male

DRUGS (1)
  1. TICAGRELOR [Suspect]
     Active Substance: TICAGRELOR
     Indication: Acute coronary syndrome
     Dosage: BETWEEN MAY 2020- SEPTEMBER 2020 THE PATIENT DID NOT FOLLOW BRILIQUE TREATMENT
     Route: 048

REACTIONS (8)
  - Vascular stent stenosis [Unknown]
  - Blood glucose abnormal [Unknown]
  - Blood cholesterol abnormal [Unknown]
  - Asthenia [Unknown]
  - Cough [Unknown]
  - Orthopnoea [Unknown]
  - Dyspnoea exertional [Unknown]
  - Dyspnoea [Unknown]
